FAERS Safety Report 5081051-3 (Version None)
Quarter: 2006Q3

REPORT INFORMATION
  Report Type: 
  Country: None (occurrence: None)
  Receive Date: 20060810
  Receipt Date: 20060801
  Transmission Date: 20061208
  Serious: Yes (Other)
  Sender: FDA-Public Use
  Company Number: US200607004632

PATIENT
  Age: 16 Year
  Sex: Male

DRUGS (2)
  1. STRATTERA [Suspect]
     Indication: AUTISM
     Dosage: 520 MG, OTHER
     Route: 050
  2. FLUOXETINE [Concomitant]

REACTIONS (4)
  - CONVULSION [None]
  - CONVULSIVE THRESHOLD LOWERED [None]
  - INTENTIONAL OVERDOSE [None]
  - PRESCRIBED OVERDOSE [None]
